FAERS Safety Report 6318897-7 (Version None)
Quarter: 2009Q3

REPORT INFORMATION
  Report Type: 
  Country: None (occurrence: None)
  Receive Date: 20090821
  Receipt Date: 20090813
  Transmission Date: 20100115
  Serious: Yes (Hospitalization)
  Sender: FDA-Public Use
  Company Number: FR-ABBOTT-09P-056-0591047-00

PATIENT
  Age: 59 Year
  Sex: Female

DRUGS (2)
  1. HUMIRA [Suspect]
     Indication: RHEUMATOID ARTHRITIS
     Route: 058
     Dates: start: 20071001, end: 20090701
  2. HUMIRA [Suspect]
     Route: 058
     Dates: start: 20071001, end: 20090701

REACTIONS (3)
  - DEMYELINATION [None]
  - DIPLOPIA [None]
  - FACIAL PALSY [None]
